FAERS Safety Report 6687527-7 (Version None)
Quarter: 2010Q2

REPORT INFORMATION
  Report Type: 
  Country: None (occurrence: None)
  Receive Date: 20100419
  Receipt Date: 20091221
  Transmission Date: 20101027
  Serious: No
  Sender: FDA-Public Use
  Company Number: US-ABBOTT-09P-163-0611546-00

PATIENT
  Sex: Male

DRUGS (2)
  1. LUPRON DEPOT-PED [Suspect]
     Indication: PROSTATE CANCER
     Dates: start: 20080101, end: 20080101
  2. LUPRON DEPOT [Suspect]
     Indication: DRUG USE FOR UNKNOWN INDICATION

REACTIONS (1)
  - DRUG DISPENSING ERROR [None]
